FAERS Safety Report 10232365 (Version 1)
Quarter: 2014Q2

REPORT INFORMATION
  Report Type: Spontaneous
  Country: US (occurrence: None)
  Receive Date: 20140610
  Receipt Date: 20140610
  Transmission Date: 20141212
  Serious: Yes (Other)
  Sender: FDA-Public Use
  Company Number: None

PATIENT
  Age: 88 Year
  Sex: Female
  Weight: 72.58 kg

DRUGS (9)
  1. HYDRALAZINE [Suspect]
     Indication: HYPERTENSION
     Dosage: 10MG, 1 PILL, TWICE DAILY, BY MOUTH
     Route: 048
     Dates: start: 20140416, end: 20140428
  2. FELODIPINE [Concomitant]
  3. BYSTOLIC LISINOPRIL [Concomitant]
  4. BRIMONDINE [Concomitant]
  5. DORZOLAMINE [Concomitant]
  6. TRAVATAN XARELTO [Concomitant]
  7. VIT. D + 12 [Concomitant]
  8. OMEGA XL [Concomitant]
  9. ASPIRIN [Concomitant]

REACTIONS (3)
  - Deep vein thrombosis [None]
  - Joint swelling [None]
  - Paraesthesia [None]
